FAERS Safety Report 7508706-2 (Version None)
Quarter: 2011Q2

REPORT INFORMATION
  Report Type: 
  Country: None (occurrence: None)
  Receive Date: 20110527
  Receipt Date: 20100809
  Transmission Date: 20111010
  Serious: No
  Sender: FDA-Public Use
  Company Number: A0874616A

PATIENT
  Sex: Female

DRUGS (4)
  1. ADVAIR DISKUS 100/50 [Concomitant]
  2. NORVASC [Concomitant]
  3. ATROVENT [Concomitant]
  4. VENTOLIN [Suspect]
     Indication: CHRONIC OBSTRUCTIVE PULMONARY DISEASE
     Dosage: 2PUFF FOUR TIMES PER DAY
     Route: 055

REACTIONS (3)
  - DRUG INEFFECTIVE [None]
  - THROAT IRRITATION [None]
  - PRODUCT QUALITY ISSUE [None]
